FAERS Safety Report 7059375-X (Version None)
Quarter: 2010Q4

REPORT INFORMATION
  Report Type: 
  Country: None (occurrence: None)
  Receive Date: 20101025
  Receipt Date: 20101014
  Transmission Date: 20110411
  Serious: Yes (Other)
  Sender: FDA-Public Use
  Company Number: BR-BAYER-201019471LA

PATIENT
  Age: 39 Year
  Sex: Female

DRUGS (2)
  1. MIRENA [Suspect]
     Indication: PRODUCT USED FOR UNKNOWN INDICATION
     Dosage: FREQUENCY: CONTINUOUS
     Route: 015
  2. MIRENA [Suspect]
     Dosage: FREQUENCY: CONTINUOUS
     Route: 015

REACTIONS (5)
  - DYSMENORRHOEA [None]
  - INFERTILITY [None]
  - METRORRHAGIA [None]
  - POLYMENORRHOEA [None]
  - POST PROCEDURAL DISCOMFORT [None]
